FAERS Safety Report 8245255 (Version 5)
Quarter: 2012Q4

REPORT INFORMATION
  Report Type: Report from Study
  Country: DE (occurrence: DE)
  Receive Date: 20111115
  Receipt Date: 20121002
  Transmission Date: 20130627
  Serious: Yes (Life-Threatening, Hospitalization)
  Sender: FDA-Public Use
  Company Number: DE-ROCHE-1011069

PATIENT
  Age: 65 Year
  Sex: Male
  Weight: 74 kg

DRUGS (5)
  1. XELODA [Suspect]
     Indication: RECTAL CANCER
     Route: 048
     Dates: start: 20110815
  2. GLIMEPIRIDE [Concomitant]
     Indication: DIABETES MELLITUS
     Route: 048
  3. PROVAS (GERMANY) [Concomitant]
     Indication: HYPERTENSION
     Route: 048
  4. AMLODIPIN [Concomitant]
     Indication: HYPERTENSION
     Route: 048
  5. TIM-OPHTAL [Concomitant]
     Dosage: dose: 0.1
     Route: 065

REACTIONS (4)
  - Cerebral infarction [Recovered/Resolved with Sequelae]
  - Carotid artery stenosis [Recovered/Resolved]
  - Cerebrovascular accident [Not Recovered/Not Resolved]
  - Hemiparesis [Recovered/Resolved with Sequelae]
